FAERS Safety Report 8278857-6 (Version None)
Quarter: 2012Q2

REPORT INFORMATION
  Report Type: 
  Country: None (occurrence: None)
  Receive Date: 20120412
  Receipt Date: 20120109
  Transmission Date: 20120825
  Serious: No
  Sender: FDA-Public Use
  Company Number: US-ASTRAZENECA-2007UW28397

PATIENT
  Age: 36 Year
  Sex: Female
  Weight: 52.2 kg

DRUGS (2)
  1. NEXIUM [Suspect]
     Indication: ULCER
     Route: 048
     Dates: start: 20070201
  2. ARIMIDEX [Suspect]
     Route: 048

REACTIONS (5)
  - ABASIA [None]
  - HYPOAESTHESIA [None]
  - MYALGIA [None]
  - ASTHENIA [None]
  - ARTHRALGIA [None]
